FAERS Safety Report 8101268-0 (Version None)
Quarter: 2012Q1

REPORT INFORMATION
  Report Type: 
  Country: None (occurrence: None)
  Receive Date: 20120129
  Receipt Date: 20110919
  Transmission Date: 20120608
  Serious: No
  Sender: FDA-Public Use
  Company Number: US-ABBOTT-11P-163-0856331-00

PATIENT
  Age: 52 Year
  Sex: Female

DRUGS (8)
  1. VENLAFAXINE [Concomitant]
     Indication: DEPRESSION
  2. VITAMIN B COMPLEX CAP [Concomitant]
     Indication: VITAMIN SUPPLEMENTATION
  3. LEVOTHYROXINE SODIUM [Concomitant]
     Indication: THYROID DISORDER
  4. LYSINE [Concomitant]
     Indication: MINERAL SUPPLEMENTATION
  5. HUMIRA [Suspect]
     Indication: RHEUMATOID ARTHRITIS
     Dates: start: 20000101
  6. IBUPROFEN [Concomitant]
     Indication: PRODUCT USED FOR UNKNOWN INDICATION
     Dosage: PRN
  7. METHOTREXATE [Concomitant]
     Indication: RHEUMATOID ARTHRITIS
  8. LOVAZA [Concomitant]
     Indication: MINERAL SUPPLEMENTATION

REACTIONS (6)
  - WEIGHT DECREASED [None]
  - DEHYDRATION [None]
  - ABDOMINAL ABSCESS [None]
  - ABDOMINAL DISCOMFORT [None]
  - INJECTION SITE HAEMATOMA [None]
  - INJECTION SITE PAPULE [None]
